FAERS Safety Report 16180214 (Version 1)
Quarter: 2019Q2

REPORT INFORMATION
  Report Type: Spontaneous
  Country: FR (occurrence: FR)
  Receive Date: 20190410
  Receipt Date: 20190410
  Transmission Date: 20190711
  Serious: Yes (Hospitalization)
  Sender: FDA-Public Use
  Company Number: FR-PFIZER INC-2019150326

PATIENT
  Age: 26 Year
  Sex: Male
  Weight: 77 kg

DRUGS (2)
  1. IBUPROFEN. [Suspect]
     Active Substance: IBUPROFEN
     Indication: VIRAL INFECTION
     Dosage: UNK
     Route: 048
     Dates: start: 20180620, end: 20180621
  2. PARACETAMOL [Suspect]
     Active Substance: ACETAMINOPHEN
     Indication: VIRAL INFECTION
     Dosage: UNK
     Route: 048
     Dates: start: 20180620, end: 20180621

REACTIONS (1)
  - Hepatocellular injury [Recovered/Resolved]

NARRATIVE: CASE EVENT DATE: 20180621
